APPROVED DRUG PRODUCT: EXNA
Active Ingredient: BENZTHIAZIDE
Strength: 50MG
Dosage Form/Route: TABLET;ORAL
Application: N012489 | Product #001
Applicant: AH ROBINS INC
Approved: Approved Prior to Jan 1, 1982 | RLD: No | RS: No | Type: DISCN